FAERS Safety Report 18216124 (Version 2)
Quarter: 2020Q3

REPORT INFORMATION
  Report Type: Spontaneous
  Country: DE (occurrence: DE)
  Receive Date: 20200901
  Receipt Date: 20200910
  Transmission Date: 20201103
  Serious: Yes (Hospitalization)
  Sender: FDA-Public Use
  Company Number: DE-TEVA-2020-DE-1821936

PATIENT
  Age: 64 Year
  Sex: Female

DRUGS (6)
  1. DEXAMETHASONE. [Suspect]
     Active Substance: DEXAMETHASONE
     Indication: GLIOBLASTOMA
     Dosage: 2 MILLIGRAM DAILY;
     Dates: start: 20191106
  2. IBRANCE [Suspect]
     Active Substance: PALBOCICLIB
     Indication: CEREBRAL DISORDER
  3. LEVETIRACETAM. [Concomitant]
     Active Substance: LEVETIRACETAM
     Dates: start: 20190926, end: 20191224
  4. IBRANCE [Suspect]
     Active Substance: PALBOCICLIB
     Indication: FATIGUE
     Dosage: 100 MILLIGRAM DAILY;
     Route: 048
     Dates: start: 20191212, end: 20191224
  5. PANTOPRAZOLE [Concomitant]
     Active Substance: PANTOPRAZOLE
     Dates: start: 20191028, end: 20191224
  6. IBRANCE [Suspect]
     Active Substance: PALBOCICLIB
     Indication: FINE MOTOR SKILL DYSFUNCTION

REACTIONS (1)
  - Tumour pseudoprogression [Recovered/Resolved]

NARRATIVE: CASE EVENT DATE: 20191224
